FAERS Safety Report 19869266 (Version 1)
Quarter: 2021Q3

REPORT INFORMATION
  Report Type: Spontaneous
  Country: NL (occurrence: NL)
  Receive Date: 20210922
  Receipt Date: 20210922
  Transmission Date: 20211014
  Serious: Yes (Hospitalization)
  Sender: FDA-Public Use
  Company Number: NL-MYLANLABS-2021M1063729

PATIENT
  Sex: Female
  Weight: 80 kg

DRUGS (2)
  1. BACLOFEN. [Suspect]
     Active Substance: BACLOFEN
     Indication: MUSCLE SPASMS
     Dosage: UNK
  2. CONSTELLA [Interacting]
     Active Substance: LINACLOTIDE
     Indication: CONSTIPATION
     Dosage: 1X DAAYS
     Dates: start: 2021, end: 20210426

REACTIONS (5)
  - Hypertonia [Recovered/Resolved]
  - Headache [Recovered/Resolved]
  - Abdominal discomfort [Recovered/Resolved]
  - Drug interaction [Unknown]
  - Muscle spasms [Recovered/Resolved]
